FAERS Safety Report 8507529-5 (Version None)
Quarter: 2012Q3

REPORT INFORMATION
  Report Type: 
  Country: None (occurrence: None)
  Receive Date: 20120713
  Receipt Date: 20120425
  Transmission Date: 20120928
  Serious: Yes (Hospitalization)
  Sender: FDA-Public Use
  Company Number: US-BRISTOL-MYERS SQUIBB COMPANY-16567323

PATIENT
  Age: 69 Year
  Sex: Male
  Weight: 78 kg

DRUGS (3)
  1. FLUOROURACIL [Suspect]
     Indication: HEAD AND NECK CANCER
     Dosage: LAST DOSE: 10-APR-2012
     Route: 065
     Dates: start: 20120321
  2. CETUXIMAB [Suspect]
     Indication: HEAD AND NECK CANCER
     Dosage: RECENT INF: 17-APR-2012
     Route: 065
     Dates: start: 20120321
  3. CARBOPLATIN [Suspect]
     Indication: HEAD AND NECK CANCER
     Dosage: 1DF:AUC5. LAST DOSE: 10-APR-2012
     Route: 065
     Dates: start: 20120321

REACTIONS (4)
  - TACHYCARDIA [None]
  - PYREXIA [None]
  - DEVICE RELATED INFECTION [None]
  - DEHYDRATION [None]
